FAERS Safety Report 7421156-2 (Version None)
Quarter: 2011Q2

REPORT INFORMATION
  Report Type: 
  Country: None (occurrence: None)
  Receive Date: 20110408
  Receipt Date: 20110328
  Transmission Date: 20111010
  Serious: Yes (Other)
  Sender: FDA-Public Use
  Company Number: 2011SP014268

PATIENT
  Age: 26 Year
  Sex: Female

DRUGS (1)
  1. PHENPROCOUMON (PHENPROCOUMON /00034501/) [Suspect]
     Indication: PRODUCT USED FOR UNKNOWN INDICATION

REACTIONS (3)
  - INTENTIONAL DRUG MISUSE [None]
  - TOXICITY TO VARIOUS AGENTS [None]
  - DRUG EXPOSURE DURING PREGNANCY [None]
